FAERS Safety Report 9893813 (Version 2)
Quarter: 2014Q1

REPORT INFORMATION
  Report Type: Spontaneous
  Country: FR (occurrence: FR)
  Receive Date: 20140213
  Receipt Date: 20140226
  Transmission Date: 20141002
  Serious: Yes (Hospitalization)
  Sender: FDA-Public Use
  Company Number: FR-B.I. PHARMACEUTICALS,INC./RIDGEFIELD-2014-BI-05279FF

PATIENT
  Age: 83 Year
  Sex: Male

DRUGS (15)
  1. JOSIR [Suspect]
     Indication: PRODUCT USED FOR UNKNOWN INDICATION
     Dosage: 0.4 MG
     Route: 048
     Dates: end: 20131121
  2. AMLOR [Suspect]
     Indication: PRODUCT USED FOR UNKNOWN INDICATION
     Dosage: 5 MG
     Route: 048
     Dates: end: 20131120
  3. LISINOPRIL ANHYDRE [Suspect]
     Indication: PRODUCT USED FOR UNKNOWN INDICATION
     Dosage: 20 MG
     Route: 048
     Dates: end: 20131120
  4. LYRICA [Suspect]
     Indication: PRODUCT USED FOR UNKNOWN INDICATION
     Dosage: 150 MG
     Route: 048
  5. LYRICA [Suspect]
     Dosage: 1 ANZ
     Route: 048
  6. LASILIX SPECIAL 500MG [Suspect]
     Indication: PRODUCT USED FOR UNKNOWN INDICATION
     Dosage: 125 MG
     Route: 048
  7. IMODIUM 2MG GENERIC MANUFACTURER [Suspect]
     Indication: PRODUCT USED FOR UNKNOWN INDICATION
     Route: 048
     Dates: end: 20131121
  8. IXPRIM 37.5MG/325MG [Suspect]
     Indication: PRODUCT USED FOR UNKNOWN INDICATION
     Dosage: DOSE PER APPLICATION AND DAILY DOSE: 37.5 MG/325 MG
     Route: 048
     Dates: end: 20131121
  9. KALEORID LP [Concomitant]
     Dosage: 1800 MG
     Route: 048
     Dates: end: 20131120
  10. HAVLANE [Concomitant]
     Dosage: 2 MG
     Route: 048
  11. SINTROM 4MG [Concomitant]
     Dosage: 3 MG
     Route: 048
  12. LANSOPRAZOLE [Concomitant]
     Dosage: 30 MG
     Route: 048
  13. KARDEGIC [Concomitant]
     Dosage: 75 MG
     Route: 048
  14. HEMIGOXINE [Concomitant]
     Dosage: 0.125 MG
     Route: 048
  15. IMOVANE [Concomitant]
     Dosage: 3.75 MG
     Route: 048

REACTIONS (4)
  - Fall [Recovered/Resolved]
  - Renal failure [Recovered/Resolved]
  - Vertigo [Recovered/Resolved]
  - Blood pressure decreased [Recovered/Resolved]
